FAERS Safety Report 23546360 (Version 1)
Quarter: 2024Q1

REPORT INFORMATION
  Report Type: Spontaneous
  Country: KR (occurrence: KR)
  Receive Date: 20240220
  Receipt Date: 20240220
  Transmission Date: 20240410
  Serious: Yes (Hospitalization, Other)
  Sender: FDA-Public Use
  Company Number: KR-SA-SAC20240216000564

PATIENT
  Age: 63 Year
  Sex: Female
  Weight: 51 kg

DRUGS (12)
  1. ZALTRAP [Suspect]
     Active Substance: ZIV-AFLIBERCEPT
     Indication: Rectal cancer
     Dosage: 215 MG, QOW
     Route: 065
     Dates: start: 20210628, end: 20210628
  2. IRINOTECAN HYDROCHLORIDE [Suspect]
     Active Substance: IRINOTECAN HYDROCHLORIDE
     Indication: Rectal cancer
     Dosage: 182 MG, QOW
     Dates: start: 20210628, end: 20210628
  3. TRIAZOLAM [Concomitant]
     Active Substance: TRIAZOLAM
     Indication: Insomnia
     Dosage: 0.25 MG, QD
     Dates: start: 20200824
  4. CELECOXIB [Concomitant]
     Active Substance: CELECOXIB
     Indication: Tumour pain
     Dosage: 200 MG, Q12H
     Dates: start: 20210614
  5. ACETAMINOPHEN\CODEINE\IBUPROFEN [Concomitant]
     Active Substance: ACETAMINOPHEN\CODEINE\IBUPROFEN
     Indication: Tumour pain
     Dosage: 260 MG, Q8H
     Dates: start: 20200706
  6. LOPERAMIDE HYDROCHLORIDE [Concomitant]
     Active Substance: LOPERAMIDE HYDROCHLORIDE
     Indication: Prophylaxis against diarrhoea
     Dosage: 2 MG
     Dates: start: 20210422
  7. ATROPINE SULFATE [Concomitant]
     Active Substance: ATROPINE SULFATE
     Indication: Diarrhoea
     Dosage: 0.5 G
     Dates: start: 20210420
  8. ALLANTOIN;LIDOCAINE;PREDNISOLONE ACETATE;TOCOPHERYL ACETATE [Concomitant]
     Indication: Anal pruritus
     Dosage: 2 G
     Dates: start: 20210628
  9. AMLODIPINE BESYLATE [Concomitant]
     Active Substance: AMLODIPINE BESYLATE
     Indication: Hypertension
     Dosage: 5 MG, QD
     Dates: start: 20200824
  10. ZEA MAYS EXTRACT [Concomitant]
     Indication: Noninfective gingivitis
     Dosage: 35 MG, Q8H
     Dates: start: 20210530
  11. MAGNESIUM OXIDE [Concomitant]
     Active Substance: MAGNESIUM OXIDE
     Indication: Constipation
     Dosage: 500 MG
     Dates: start: 20200622
  12. ACETAMINOPHEN [Concomitant]
     Active Substance: ACETAMINOPHEN
     Indication: Tumour pain
     Dosage: 650 MG
     Dates: start: 20210628

REACTIONS (1)
  - Large intestinal obstruction [Recovered/Resolved]

NARRATIVE: CASE EVENT DATE: 20210727
